FAERS Safety Report 5488553-6 (Version None)
Quarter: 2007Q4

REPORT INFORMATION
  Report Type: 
  Country: None (occurrence: None)
  Receive Date: 20071017
  Receipt Date: 20071012
  Transmission Date: 20080405
  Serious: Yes (Death, Hospitalization)
  Sender: FDA-Public Use
  Company Number: TH-GENENTECH-221511

PATIENT
  Sex: Male
  Weight: 59 kg

DRUGS (4)
  1. RITUXIMAB [Suspect]
     Indication: B-CELL LYMPHOMA
     Dosage: 100 MG, UNK
     Route: 042
     Dates: start: 20051127, end: 20060302
  2. CYCLOPHOSPHAMIDE [Suspect]
     Indication: B-CELL LYMPHOMA
     Dosage: 320 MG, UNK
     Route: 042
     Dates: start: 20051128
  3. MITOXANTRONE [Suspect]
     Indication: B-CELL LYMPHOMA
     Dosage: 9.8 MG, UNK
     Route: 042
     Dates: start: 20051128
  4. FLUDARABINE PHOSPHATE [Suspect]
     Indication: B-CELL LYMPHOMA
     Dosage: 41 MG, UNK
     Route: 042
     Dates: start: 20051128, end: 20051231

REACTIONS (1)
  - PNEUMONIA [None]
